FAERS Safety Report 23917714 (Version 1)
Quarter: 2024Q2

REPORT INFORMATION
  Report Type: Spontaneous
  Country: CO (occurrence: CO)
  Receive Date: 20240530
  Receipt Date: 20240530
  Transmission Date: 20240716
  Serious: Yes (Other)
  Sender: FDA-Public Use
  Company Number: CO-AMGEN-COLSP2024101063

PATIENT
  Age: 55 Year
  Sex: Female

DRUGS (1)
  1. PROLIA [Suspect]
     Active Substance: DENOSUMAB
     Indication: Osteoporosis postmenopausal
     Dosage: UNK, Q6MO (UNIQUE EVERY 6 MONTHS)
     Route: 065
     Dates: start: 202311

REACTIONS (1)
  - Erythema multiforme [Unknown]

NARRATIVE: CASE EVENT DATE: 20240101
